FAERS Safety Report 13313016 (Version 1)
Quarter: 2017Q1

REPORT INFORMATION
  Report Type: Spontaneous
  Country: AU (occurrence: AU)
  Receive Date: 20170308
  Receipt Date: 20170308
  Transmission Date: 20170428
  Serious: Yes (Death, Hospitalization, Other)
  Sender: FDA-Public Use
  Company Number: AU-ELI_LILLY_AND_COMPANY-AU201703001114

PATIENT
  Age: 47 Year
  Sex: Male

DRUGS (1)
  1. ZYPREXA RELPREVV [Suspect]
     Active Substance: OLANZAPINE PAMOATE
     Indication: PRODUCT USED FOR UNKNOWN INDICATION
     Dosage: 405 MG, UNKNOWN
     Route: 065

REACTIONS (8)
  - Somnolence [Unknown]
  - Anger [Unknown]
  - Disorientation [Unknown]
  - Fall [Fatal]
  - Drug level above therapeutic [Unknown]
  - Drowning [Fatal]
  - Mental status changes [Unknown]
  - Sedation [Unknown]

NARRATIVE: CASE EVENT DATE: 20160825
